FAERS Safety Report 8992044 (Version 1)
Quarter: 2012Q4

REPORT INFORMATION
  Report Type: 
  Country: US (occurrence: US)
  Receive Date: 20121231
  Receipt Date: 20121231
  Transmission Date: 20130627
  Serious: Yes (Hospitalization)
  Sender: FDA-Public Use
  Company Number: US-ELI_LILLY_AND_COMPANY-US201212008258

PATIENT
  Age: 8 Year
  Sex: Male

DRUGS (2)
  1. HUMALOG LISPRO [Suspect]
     Indication: DIABETES MELLITUS
     Dosage: UNK, prn
  2. HUMALOG LISPRO [Suspect]
     Dosage: UNK, prn

REACTIONS (2)
  - Blood glucose abnormal [Recovered/Resolved]
  - Blood glucose increased [Unknown]
